FAERS Safety Report 5494581-7 (Version None)
Quarter: 2007Q4

REPORT INFORMATION
  Report Type: 
  Country: None (occurrence: None)
  Receive Date: 20071024
  Receipt Date: 20071015
  Transmission Date: 20080405
  Serious: Yes (Other)
  Sender: FDA-Public Use
  Company Number: US-ELI_LILLY_AND_COMPANY-US200710003676

PATIENT
  Sex: Female

DRUGS (4)
  1. FORTEO [Suspect]
     Indication: OSTEOPOROSIS
     Dosage: UNK, UNK
     Dates: start: 20060101
  2. FORTEO [Suspect]
     Dosage: UNK, UNK
  3. DIURETICS [Concomitant]
     Indication: HYPERTENSION
  4. CALCIUM [Concomitant]
     Indication: SUPPLEMENTATION THERAPY
     Dosage: 1500 MG, DAILY (1/D)

REACTIONS (3)
  - BLOOD CALCIUM INCREASED [None]
  - BLOOD UREA INCREASED [None]
  - NAUSEA [None]
